FAERS Safety Report 7792516-5 (Version None)
Quarter: 2011Q4

REPORT INFORMATION
  Report Type: 
  Country: None (occurrence: None)
  Receive Date: 20111003
  Receipt Date: 20110923
  Transmission Date: 20120403
  Serious: Yes (Hospitalization)
  Sender: FDA-Public Use
  Company Number: ES-JNJFOC-20110910844

PATIENT
  Age: 5 Decade
  Sex: Female

DRUGS (1)
  1. RISPERDAL [Suspect]
     Indication: SCHIZOPHRENIA, PARANOID TYPE
     Route: 048

REACTIONS (2)
  - DRUG TOLERANCE DECREASED [None]
  - DYSTONIA [None]
